FAERS Safety Report 9726583 (Version 2)
Quarter: 2013Q4

REPORT INFORMATION
  Report Type: Report from Study
  Country: JP (occurrence: JP)
  Receive Date: 20131203
  Receipt Date: 20131223
  Transmission Date: 20140711
  Serious: No
  Sender: FDA-Public Use
  Company Number: JP-GLAXOSMITHKLINE-B0923229A

PATIENT
  Age: 37 Year
  Sex: Female
  Weight: 42 kg

DRUGS (9)
  1. VOTRIENT 200MG [Suspect]
     Indication: FIBROSARCOMA
     Dosage: 800MG PER DAY
     Route: 048
     Dates: start: 20121214, end: 20130125
  2. VOTRIENT 200MG [Suspect]
     Indication: FIBROSARCOMA
     Dosage: 800MG PER DAY
     Route: 048
     Dates: start: 20130202, end: 20130222
  3. VOTRIENT 200MG [Suspect]
     Indication: FIBROSARCOMA
     Dosage: 800MG PER DAY
     Route: 048
     Dates: start: 20130302, end: 20130426
  4. VOTRIENT 200MG [Suspect]
     Indication: FIBROSARCOMA
     Dosage: 600MG PER DAY
     Route: 048
     Dates: start: 20130504, end: 20130517
  5. VOTRIENT 200MG [Suspect]
     Indication: FIBROSARCOMA
     Dosage: 600MG PER DAY
     Route: 048
     Dates: start: 20130525, end: 20130607
  6. VOTRIENT 200MG [Suspect]
     Indication: FIBROSARCOMA
     Dosage: 600MG PER DAY
     Route: 048
     Dates: start: 20130615, end: 20130628
  7. VOTRIENT 200MG [Suspect]
     Indication: FIBROSARCOMA
     Dosage: 600MG PER DAY
     Route: 048
     Dates: start: 20130713, end: 20130726
  8. VOTRIENT 200MG [Suspect]
     Indication: FIBROSARCOMA
     Dosage: 600MG PER DAY
     Route: 048
     Dates: start: 20130803, end: 20130816
  9. FAMOTIDINE [Concomitant]
     Indication: GASTRITIS
     Route: 065

REACTIONS (15)
  - Nausea [Recovered/Resolved]
  - Malaise [Recovered/Resolved]
  - Dysgeusia [Recovering/Resolving]
  - Hypertension [Recovering/Resolving]
  - Palmar-plantar erythrodysaesthesia syndrome [Recovering/Resolving]
  - Diarrhoea [Recovered/Resolved]
  - Headache [Recovered/Resolved]
  - Arthralgia [Not Recovered/Not Resolved]
  - Anaemia [Not Recovered/Not Resolved]
  - White blood cell count decreased [Recovered/Resolved]
  - Aspartate aminotransferase increased [Recovering/Resolving]
  - Gamma-glutamyltransferase increased [Not Recovered/Not Resolved]
  - Blood alkaline phosphatase increased [Not Recovered/Not Resolved]
  - Blood thyroid stimulating hormone increased [Not Recovered/Not Resolved]
  - Protein urine [Not Recovered/Not Resolved]
